FAERS Safety Report 12846941 (Version 2)
Quarter: 2018Q4

REPORT INFORMATION
  Report Type: Report from Study
  Country: BR (occurrence: BR)
  Receive Date: 20161014
  Receipt Date: 20181018
  Transmission Date: 20190204
  Serious: Yes (Hospitalization, Other)
  Sender: FDA-Public Use
  Company Number: PHHY2014BR132536

PATIENT
  Age: 53 Year
  Sex: Male
  Weight: 104 kg

DRUGS (10)
  1. PURAN [Suspect]
     Active Substance: LEVOTHYROXINE SODIUM
     Indication: THYROID DISORDER
     Dosage: 1 DF, QD (MORNING IN FASTING)
     Route: 065
     Dates: start: 2011
  2. DURATESTON [Concomitant]
     Active Substance: TESTOSTERONE
     Indication: HORMONE LEVEL ABNORMAL
     Dosage: UNK, EVERY 20 DAYS
     Route: 065
  3. CABERGOLINE. [Suspect]
     Active Substance: CABERGOLINE
     Dosage: 2 DF, QD
     Route: 048
  4. CABERGOLINE. [Suspect]
     Active Substance: CABERGOLINE
     Indication: ACROMEGALY
     Dosage: 3 DF, QW3
     Route: 065
  5. CABERGOLINE. [Suspect]
     Active Substance: CABERGOLINE
     Dosage: UNK, QW2 (MONDAY AND THURSDAY)
     Route: 065
     Dates: start: 2011
  6. SANDOSTATIN LAR DEPOT [Suspect]
     Active Substance: OCTREOTIDE ACETATE
     Indication: ACROMEGALY
     Dosage: 20 MG, QMO
     Route: 030
     Dates: start: 2010
  7. SANDOSTATIN LAR DEPOT [Suspect]
     Active Substance: OCTREOTIDE ACETATE
     Dosage: 30 MG, QMO
     Route: 030
     Dates: start: 2011
  8. PURAN [Suspect]
     Active Substance: LEVOTHYROXINE SODIUM
     Dosage: UNK
     Route: 065
  9. DUFASTON [Concomitant]
     Active Substance: DYDROGESTERONE
     Indication: PRODUCT USED FOR UNKNOWN INDICATION
     Dosage: 1 DF, EVERY 20 DAYS
     Route: 030
  10. PURAN [Suspect]
     Active Substance: LEVOTHYROXINE SODIUM
     Dosage: 125 MG, UNK
     Route: 048

REACTIONS (5)
  - Thyroid mass [Unknown]
  - Hypertension [Recovering/Resolving]
  - Blood growth hormone increased [Recovering/Resolving]
  - Cholelithiasis [Recovered/Resolved]
  - Thyroid disorder [Not Recovered/Not Resolved]

NARRATIVE: CASE EVENT DATE: 201808
